FAERS Safety Report 4721319-0 (Version None)
Quarter: 2005Q3

REPORT INFORMATION
  Report Type: 
  Country: None (occurrence: None)
  Receive Date: 20050721
  Receipt Date: 20040617
  Transmission Date: 20060218
  Serious: No
  Sender: FDA-Public Use
  Company Number: US-BRISTOL-MYERS SQUIBB COMPANY-12617940

PATIENT
  Age: 39 Year
  Sex: Female
  Weight: 84 kg

DRUGS (16)
  1. COUMADIN [Suspect]
     Indication: HEART VALVE REPLACEMENT
     Dosage: TAKEN FOR 20 YEARS, THEN RESTARTED AFTER 17-DEC-2003;08-JUN-2004:15MG QD X 2 DAYS,THEN 12.5MG QD
  2. COUMADIN [Suspect]
     Indication: CEREBROVASCULAR ACCIDENT
     Dosage: TAKEN FOR 20 YEARS, THEN RESTARTED AFTER 17-DEC-2003;08-JUN-2004:15MG QD X 2 DAYS,THEN 12.5MG QD
  3. LOVENOX [Concomitant]
     Dosage: 0.6MG INJECTION WHEN NEEDED; STARTED BACK DEPENDING ON ^HEART BIOPSIES^.
  4. NEORAL [Concomitant]
  5. PREDNISONE [Concomitant]
  6. MULTIVITAMIN W/IRON [Concomitant]
  7. MAGNESIUM OXIDE [Concomitant]
  8. CALCIUM + VITAMIN D [Concomitant]
  9. MYCELEX [Concomitant]
  10. BACTRIM DS [Concomitant]
     Dosage: 1 TAB 3 X'S A WEEK
  11. PROTONIX [Concomitant]
  12. ASPIRIN [Concomitant]
  13. IRON [Concomitant]
  14. ASCORBIC ACID [Concomitant]
  15. ZOCOR [Concomitant]
  16. DILTIAZEM HCL [Concomitant]

REACTIONS (3)
  - ALOPECIA [None]
  - INTERNATIONAL NORMALISED RATIO ABNORMAL [None]
  - OCULAR ICTERUS [None]
